FAERS Safety Report 13394662 (Version 1)
Quarter: 2017Q2

REPORT INFORMATION
  Report Type: Spontaneous
  Country: EG (occurrence: EG)
  Receive Date: 20170403
  Receipt Date: 20170403
  Transmission Date: 20170830
  Serious: Yes (Other)
  Sender: FDA-Public Use
  Company Number: EG-ROCHE-1913672

PATIENT
  Age: 36 Year
  Sex: Female
  Weight: 75 kg

DRUGS (3)
  1. TAMOFEN [Suspect]
     Active Substance: TAMOXIFEN CITRATE
     Indication: NEOPLASM MALIGNANT
     Route: 048
     Dates: start: 20170114
  2. ZOLADEX [Suspect]
     Active Substance: GOSERELIN ACETATE
     Indication: NEOPLASM MALIGNANT
     Route: 058
     Dates: start: 20170114
  3. HERCEPTIN [Suspect]
     Active Substance: TRASTUZUMAB
     Indication: NEOPLASM MALIGNANT
     Route: 042
     Dates: start: 20170114, end: 20170204

REACTIONS (1)
  - Glucose tolerance impaired [Not Recovered/Not Resolved]

NARRATIVE: CASE EVENT DATE: 20170204
